FAERS Safety Report 13510695 (Version 1)
Quarter: 2017Q2

REPORT INFORMATION
  Report Type: Report from Study
  Country: US (occurrence: US)
  Receive Date: 20170503
  Receipt Date: 20170503
  Transmission Date: 20170830
  Serious: Yes (Hospitalization, Other)
  Sender: FDA-Public Use
  Company Number: PHHO2013US018520

PATIENT
  Age: 13 Year
  Sex: Male
  Weight: 46.6 kg

DRUGS (12)
  1. ARRANON [Suspect]
     Active Substance: NELARABINE
     Indication: T-CELL TYPE ACUTE LEUKAEMIA
     Dosage: 9300 MG, (TOTAL DOSE)
     Route: 042
     Dates: start: 20130307, end: 20130601
  2. CYTARABINE. [Suspect]
     Active Substance: CYTARABINE
     Dosage: 1700 MG, (TOTAL DOSE)
     Route: 037
     Dates: end: 20130614
  3. CYCLOPHOSPHAMIDE. [Suspect]
     Active Substance: CYCLOPHOSPHAMIDE
     Indication: T-CELL TYPE ACUTE LEUKAEMIA
     Dosage: 1500 MG, (TOTAL DOSE)
     Route: 042
     Dates: start: 20130307, end: 20130423
  4. METHOTREXATE. [Suspect]
     Active Substance: METHOTREXATE
     Indication: T-CELL TYPE ACUTE LEUKAEMIA
     Dosage: 60 MG, UNK
     Route: 037
     Dates: start: 20130307, end: 20130507
  5. PREDNISONE. [Suspect]
     Active Substance: PREDNISONE
     Indication: T-CELL TYPE ACUTE LEUKAEMIA
     Dosage: 5040 MG, (TOTAL DOSE)
     Route: 048
     Dates: start: 20130307, end: 20130403
  6. VINCRISTINE SULPHATE [Suspect]
     Active Substance: VINCRISTINE SULFATE
     Indication: T-CELL TYPE ACUTE LEUKAEMIA
     Dosage: 12 MG, UNK
     Route: 042
     Dates: start: 20130307, end: 20130514
  7. PEGASPARGASE [Suspect]
     Active Substance: PEGASPARGASE
     Indication: T-CELL TYPE ACUTE LEUKAEMIA
     Dosage: 7425 IU, (TOTAL DOSE)
     Route: 065
     Dates: start: 20130307, end: 20130508
  8. PEGASPARGASE [Suspect]
     Active Substance: PEGASPARGASE
     Dosage: 7075 IU, (TOTAL DOSE)
     Route: 065
  9. DAUNORUBICIN [Suspect]
     Active Substance: DAUNORUBICIN
     Indication: T-CELL TYPE ACUTE LEUKAEMIA
     Dosage: 152 MG, (TOTAL DOSE)
     Route: 042
     Dates: start: 20130307, end: 20130328
  10. MERCAPTOPURINE. [Suspect]
     Active Substance: MERCAPTOPURINE
     Indication: T-CELL TYPE ACUTE LEUKAEMIA
     Dosage: 1249 MG, (TOTAL DOSE)
     Route: 048
     Dates: start: 20130307, end: 20130506
  11. CYTARABINE. [Suspect]
     Active Substance: CYTARABINE
     Indication: T-CELL TYPE ACUTE LEUKAEMIA
     Dosage: 950 MG, (TOTAL DOSE)
     Route: 037
     Dates: start: 20130307, end: 20130503
  12. CYCLOPHOSPHAMIDE. [Suspect]
     Active Substance: CYCLOPHOSPHAMIDE
     Dosage: 2870 MG, (TOTAL DOSE)
     Route: 042
     Dates: end: 20130604

REACTIONS (2)
  - Back pain [Recovered/Resolved]
  - Neuropathy peripheral [Recovering/Resolving]

NARRATIVE: CASE EVENT DATE: 20130519
